FAERS Safety Report 6639723-2 (Version None)
Quarter: 2010Q1

REPORT INFORMATION
  Report Type: 
  Country: None (occurrence: None)
  Receive Date: 20100318
  Receipt Date: 20100305
  Transmission Date: 20100710
  Serious: Yes (Other)
  Sender: FDA-Public Use
  Company Number: PHHY2010GB04169

PATIENT
  Age: 50 Year
  Sex: Female

DRUGS (1)
  1. CLIMAVAL [Suspect]
     Indication: HORMONE REPLACEMENT THERAPY
     Dosage: 1 MG
     Route: 048
     Dates: start: 20090101

REACTIONS (2)
  - STRESS [None]
  - TRANSIENT GLOBAL AMNESIA [None]
